FAERS Safety Report 24119232 (Version 1)
Quarter: 2024Q3

REPORT INFORMATION
  Report Type: Spontaneous
  Country: US (occurrence: US)
  Receive Date: 20240722
  Receipt Date: 20240722
  Transmission Date: 20241016
  Serious: Yes (Death, Hospitalization)
  Sender: STRIDES
  Company Number: US-STRIDES ARCOLAB LIMITED-2024SP008654

PATIENT
  Age: 33 Year
  Sex: Female

DRUGS (17)
  1. ETOPOSIDE [Suspect]
     Active Substance: ETOPOSIDE
     Indication: Choriocarcinoma
     Dosage: UNK, CYCLICAL (1 CYCLE)
     Route: 065
  2. ETOPOSIDE [Suspect]
     Active Substance: ETOPOSIDE
     Dosage: UNK, (AS A PART OF EMA-CO REGIMEN)
     Route: 065
  3. ETOPOSIDE [Suspect]
     Active Substance: ETOPOSIDE
     Dosage: UNK, CYCLICAL (5 CYCLES) (AS A PART OF EMA-EP REGIMENAS A PART OF EMA-EP REGIMEN)
     Route: 065
  4. ETOPOSIDE [Suspect]
     Active Substance: ETOPOSIDE
     Dosage: UNK, CYCLICAL (WITH PACLITAXEL)
     Route: 065
  5. METHOTREXATE [Suspect]
     Active Substance: METHOTREXATE
     Indication: Choriocarcinoma
     Dosage: UNK (AS A PART OF EMA-CO REGIMEN)
     Route: 065
  6. METHOTREXATE [Suspect]
     Active Substance: METHOTREXATE
     Dosage: UNK, CYCLICAL (5 CYCLES) (AS A PART OF EMA-EP REGIMENAS A PART OF EMA-EP REGIMEN)
     Route: 065
  7. CISPLATIN [Suspect]
     Active Substance: CISPLATIN
     Indication: Choriocarcinoma
     Dosage: UNK, CYCLICAL (1 CYCLE)
     Route: 065
  8. CISPLATIN [Suspect]
     Active Substance: CISPLATIN
     Dosage: UNK, CYCLICAL (5 CYCLES) (AS A PART OF EMA-EP REGIMENAS A PART OF EMA-EP REGIMEN)
     Route: 065
  9. CISPLATIN [Suspect]
     Active Substance: CISPLATIN
     Dosage: UNK
     Route: 065
  10. ACTINOMYCIN D [Suspect]
     Active Substance: DACTINOMYCIN
     Indication: Choriocarcinoma
     Dosage: UNK (AS A PART OF EMA-CO REGIMEN)
     Route: 065
  11. ACTINOMYCIN D [Suspect]
     Active Substance: DACTINOMYCIN
     Dosage: UNK, CYCLICAL (5 CYCLES) (AS A PART OF EMA-EP REGIMENAS A PART OF EMA-EP REGIMEN)
     Route: 065
  12. CYCLOPHOSPHAMIDE [Suspect]
     Active Substance: CYCLOPHOSPHAMIDE
     Indication: Choriocarcinoma
     Dosage: UNK (AS A PART OF EMA-CO REGIMEN)
     Route: 065
  13. VINCRISTINE [Suspect]
     Active Substance: VINCRISTINE
     Indication: Choriocarcinoma
     Dosage: UNK (AS A PART OF EMA-CO REGIMEN)
     Route: 065
  14. PACLITAXEL [Suspect]
     Active Substance: PACLITAXEL
     Indication: Choriocarcinoma
     Dosage: UNK, CYCLICAL (WITH ETOPOSIDE)
     Route: 065
  15. PACLITAXEL [Suspect]
     Active Substance: PACLITAXEL
     Dosage: UNK (WITH CISPLATIN)
     Route: 065
  16. PACLITAXEL [Suspect]
     Active Substance: PACLITAXEL
     Dosage: UNK (WITH CARBOPLATIN)
     Route: 065
  17. CARBOPLATIN [Suspect]
     Active Substance: CARBOPLATIN
     Indication: Choriocarcinoma
     Dosage: UNK (WITH PACLITAXEL)
     Route: 065

REACTIONS (7)
  - Drug ineffective [Fatal]
  - Malignant neoplasm progression [Fatal]
  - Pneumothorax spontaneous [Unknown]
  - Pulmonary fibrosis [Unknown]
  - Low lung compliance [Unknown]
  - Acute respiratory failure [Unknown]
  - Off label use [Unknown]
